FAERS Safety Report 25747219 (Version 1)
Quarter: 2025Q3

REPORT INFORMATION
  Report Type: Spontaneous
  Country: US (occurrence: US)
  Receive Date: 20250901
  Receipt Date: 20250901
  Transmission Date: 20251020
  Serious: No
  Sender: SANOFI AVENTIS
  Company Number: US-SANOFI-02638050

PATIENT
  Age: 31 Year
  Sex: Female

DRUGS (1)
  1. LANTUS SOLOSTAR [Suspect]
     Active Substance: INSULIN GLARGINE
     Indication: Type 2 diabetes mellitus
     Dosage: 68 UNITS IN THE MORNING AND 40 UNITS AT BEDTIME, BID

REACTIONS (2)
  - Drug ineffective [Unknown]
  - Off label use [Unknown]
